FAERS Safety Report 11218540 (Version 1)
Quarter: 2015Q2

REPORT INFORMATION
  Report Type: Spontaneous
  Country: US (occurrence: US)
  Receive Date: 20150625
  Receipt Date: 20150625
  Transmission Date: 20150821
  Serious: No
  Sender: FDA-Public Use
  Company Number: US-PFIZER INC-2015206480

PATIENT
  Age: 51 Year
  Sex: Female
  Weight: 61 kg

DRUGS (1)
  1. IBRANCE [Suspect]
     Active Substance: PALBOCICLIB
     Indication: BREAST CANCER METASTATIC
     Dosage: 125 MG, CYCLIC (DAY 1-21 EVERY 28 DAYS)
     Route: 048
     Dates: start: 20150525

REACTIONS (8)
  - Abdominal discomfort [Unknown]
  - Fatigue [Unknown]
  - Pyrexia [Unknown]
  - Neuralgia [Unknown]
  - Headache [Not Recovered/Not Resolved]
  - Gait disturbance [Unknown]
  - Diarrhoea [Unknown]
  - Influenza [Unknown]
